FAERS Safety Report 21863780 (Version 1)
Quarter: 2023Q1

REPORT INFORMATION
  Report Type: Spontaneous
  Country: US (occurrence: US)
  Receive Date: 20230116
  Receipt Date: 20230116
  Transmission Date: 20230417
  Serious: Yes (Other)
  Sender: FDA-Public Use
  Company Number: US-AMGEN-USASP2023003768

PATIENT
  Age: 68 Year
  Sex: Female

DRUGS (6)
  1. TALIMOGENE LAHERPAREPVEC [Suspect]
     Active Substance: TALIMOGENE LAHERPAREPVEC
     Indication: Metastatic malignant melanoma
     Dosage: UNK
     Route: 065
  2. TALIMOGENE LAHERPAREPVEC [Suspect]
     Active Substance: TALIMOGENE LAHERPAREPVEC
     Indication: Vulval cancer metastatic
  3. NIVOLUMAB [Concomitant]
     Active Substance: NIVOLUMAB
     Indication: Vulval cancer metastatic
     Dosage: 480 MILLIGRAM
     Route: 040
  4. NIVOLUMAB [Concomitant]
     Active Substance: NIVOLUMAB
     Indication: Metastatic malignant melanoma
  5. FLUDEOXYGLUCOSE F-18 [Concomitant]
     Active Substance: FLUDEOXYGLUCOSE F-18
     Indication: Vulval cancer metastatic
     Dosage: UNK
  6. FLUDEOXYGLUCOSE F-18 [Concomitant]
     Active Substance: FLUDEOXYGLUCOSE F-18
     Indication: Metastatic malignant melanoma

REACTIONS (2)
  - Metastatic malignant melanoma [Recovered/Resolved]
  - Off label use [Unknown]
